FAERS Safety Report 16561255 (Version 4)
Quarter: 2019Q3

REPORT INFORMATION
  Report Type: Report from Study
  Country: None (occurrence: BE)
  Receive Date: 20190711
  Receipt Date: 20190823
  Transmission Date: 20191004
  Serious: Yes (Hospitalization)
  Sender: FDA-Public Use
  Company Number: BE-ABBVIE-19P-013-2845453-00

PATIENT
  Age: 78 Year
  Sex: Female
  Weight: 54 kg

DRUGS (15)
  1. DUODOPA [Suspect]
     Active Substance: CARBIDOPA\LEVODOPA
     Route: 050
     Dates: start: 20170428, end: 20171120
  2. DUODOPA [Suspect]
     Active Substance: CARBIDOPA\LEVODOPA
     Route: 050
     Dates: start: 20171120
  3. DOMPERIDONE [Concomitant]
     Active Substance: DOMPERIDONE
     Indication: IMPAIRED GASTRIC EMPTYING
     Route: 048
     Dates: start: 20190130
  4. MOVICOL [Concomitant]
     Active Substance: POLYETHYLENE GLYCOL 3350\POTASSIUM CHLORIDE\SODIUM BICARBONATE\SODIUM CHLORIDE
     Indication: CONSTIPATION
     Route: 048
     Dates: start: 2017
  5. FIBION [Concomitant]
     Indication: CONSTIPATION
     Dosage: 1 SPOON (LIQUID)
     Route: 048
     Dates: start: 20180810
  6. LOSEC [Concomitant]
     Active Substance: OMEPRAZOLE
     Indication: GASTROOESOPHAGEAL REFLUX DISEASE
     Route: 048
     Dates: start: 20190112
  7. PROLOPA [Concomitant]
     Active Substance: BENSERAZIDE\LEVODOPA
     Indication: PARKINSON^S DISEASE
     Route: 048
     Dates: start: 20160313
  8. NUTRITION PACK MULTIFIBRE [Concomitant]
     Indication: WEIGHT DECREASED
     Route: 050
     Dates: start: 20190207
  9. RIVOTRIL [Concomitant]
     Active Substance: CLONAZEPAM
     Indication: PANIC REACTION
     Route: 048
     Dates: start: 2016
  10. REMINYL [Concomitant]
     Active Substance: GALANTAMINE
     Indication: COGNITIVE DISORDER
     Route: 048
     Dates: start: 2015
  11. DUODOPA [Suspect]
     Active Substance: CARBIDOPA\LEVODOPA
     Indication: PARKINSON^S DISEASE
     Dosage: TITRATION MD:12 ML; CD: 2.5 ML/H; ED: 2ML; 3/DAY 16 HOURS
     Route: 050
     Dates: start: 20170426, end: 20170428
  12. L-THYROXINE [Concomitant]
     Active Substance: LEVOTHYROXINE
     Indication: HYPOTHYROIDISM
     Route: 048
     Dates: start: 201301
  13. FIBION [Concomitant]
     Indication: CONSTIPATION
     Dosage: 1 SPOON (LIQUID)
     Route: 048
     Dates: start: 20180810
  14. HYLO COMOD [Concomitant]
     Active Substance: HYALURONATE SODIUM
     Indication: EYE IRRITATION
     Route: 047
     Dates: start: 20190708
  15. RIVOTRIL [Concomitant]
     Active Substance: CLONAZEPAM
     Indication: INSOMNIA

REACTIONS (1)
  - General physical health deterioration [Not Recovered/Not Resolved]

NARRATIVE: CASE EVENT DATE: 20190705
